FAERS Safety Report 8271696-1 (Version None)
Quarter: 2012Q2

REPORT INFORMATION
  Report Type: 
  Country: None (occurrence: None)
  Receive Date: 20120410
  Receipt Date: 20120329
  Transmission Date: 20120825
  Serious: No
  Sender: FDA-Public Use
  Company Number: US-BAYER-2012-034085

PATIENT
  Age: 82 Year
  Sex: Male
  Weight: 74 kg

DRUGS (7)
  1. LORATADINE [Concomitant]
  2. ASPIRIN [Concomitant]
     Dosage: 325 MG, UNK
  3. ALEVE (CAPLET) [Suspect]
     Indication: PRODUCT USED FOR UNKNOWN INDICATION
     Dosage: USED ONLY ONE TIME
     Route: 048
  4. OMEPRAZOLE [Concomitant]
  5. MULTI-VITAMIN [Concomitant]
  6. HYDROCHLOROTHIAZIDE [Concomitant]
  7. ZOCOR [Concomitant]

REACTIONS (2)
  - NAUSEA [None]
  - HEADACHE [None]
